FAERS Safety Report 16541696 (Version 1)
Quarter: 2019Q3

REPORT INFORMATION
  Report Type: Spontaneous
  Country: TR (occurrence: TR)
  Receive Date: 20190708
  Receipt Date: 20190708
  Transmission Date: 20191004
  Serious: Yes (Life-Threatening, Hospitalization, Other)
  Sender: FDA-Public Use
  Company Number: TR-JNJFOC-20190636649

PATIENT
  Age: 61 Year
  Sex: Female
  Weight: 90 kg

DRUGS (4)
  1. DURAGESIC [Suspect]
     Active Substance: FENTANYL
     Indication: ARTHRALGIA
     Dosage: EIGHT PIECES OF FENTANYL 50 MICROGRAM TRANSDERMAL THERAPEUTIC SYSTEM PATCHES ON VARIOUS PARTS OF THE
     Route: 062
  2. DURAGESIC [Suspect]
     Active Substance: FENTANYL
     Indication: PAIN IN EXTREMITY
  3. DURAGESIC [Suspect]
     Active Substance: FENTANYL
     Indication: ARTHRALGIA
  4. DURAGESIC [Suspect]
     Active Substance: FENTANYL
     Indication: BACK PAIN

REACTIONS (5)
  - Loss of consciousness [Recovered/Resolved]
  - Respiratory distress [Recovered/Resolved]
  - Intentional product misuse [Recovered/Resolved]
  - Toxicity to various agents [Recovered/Resolved]
  - Accidental poisoning [Recovered/Resolved]
